FAERS Safety Report 4525301-8 (Version None)
Quarter: 2004Q4

REPORT INFORMATION
  Report Type: 
  Country: None (occurrence: None)
  Receive Date: 20041117
  Receipt Date: 20040325
  Transmission Date: 20050328
  Serious: Yes (Other)
  Sender: FDA-Public Use
  Company Number: 2004S1000909

PATIENT
  Age: 30 Year
  Sex: Female

DRUGS (4)
  1. CLOZAPINE [Suspect]
     Indication: AUTISM
     Dosage: 300MG QD, ORAL
     Route: 048
     Dates: start: 20040201
  2. DIVALOPROEX SODIUM [Concomitant]
  3. LEVOTHYROXINE SODIUM [Concomitant]
  4. DOCUSATE SODIUM [Concomitant]

REACTIONS (3)
  - DROOLING [None]
  - DYSPHAGIA [None]
  - HYPERSOMNIA [None]
